FAERS Safety Report 4536267-9 (Version None)
Quarter: 2004Q4

REPORT INFORMATION
  Report Type: 
  Country: None (occurrence: None)
  Receive Date: 20041223
  Receipt Date: 20040524
  Transmission Date: 20050328
  Serious: No
  Sender: FDA-Public Use
  Company Number: US-GLAXOSMITHKLINE-A0511896A

PATIENT
  Age: 73 Year
  Sex: Male

DRUGS (4)
  1. FLONASE [Suspect]
     Indication: ILL-DEFINED DISORDER
     Dosage: 2PUFF TWICE PER DAY
     Route: 045
     Dates: start: 20031019
  2. PREVACID [Concomitant]
  3. WELLBUTRIN [Concomitant]
  4. ANDROGEL [Concomitant]

REACTIONS (2)
  - DRUG INEFFECTIVE [None]
  - PHARMACEUTICAL PRODUCT COMPLAINT [None]
